FAERS Safety Report 9506075 (Version 1)
Quarter: 2013Q1

REPORT INFORMATION
  Report Type: Spontaneous
  Country: US (occurrence: None)
  Receive Date: 20130305
  Receipt Date: 20130305
  Transmission Date: 20140127
  Serious: No
  Sender: FDA-Public Use
  Company Number: 163-21880-12022051

PATIENT
  Age: 76 Year
  Sex: Male
  Weight: 63.5 kg

DRUGS (4)
  1. REVLIMID (LENALIDOMIDE) (CAPSULES) [Suspect]
     Indication: AMYLOIDOSIS
     Route: 048
  2. COUMADIN (WARFARIN SODIUM) [Concomitant]
  3. FLEACAINIDE (FLECAINIDE) [Concomitant]
  4. (MULTIVITAMINS (MULTIVITAMINS) [Concomitant]

REACTIONS (1)
  - Atrial fibrillation [None]
